FAERS Safety Report 10947031 (Version 2)
Quarter: 2015Q2

REPORT INFORMATION
  Report Type: Spontaneous
  Country: DE (occurrence: DE)
  Receive Date: 20150323
  Receipt Date: 20150421
  Transmission Date: 20150821
  Serious: Yes (Other)
  Sender: FDA-Public Use
  Company Number: DE-JNJFOC-20150313115

PATIENT
  Age: 60 Year
  Sex: Male
  Weight: 92 kg

DRUGS (2)
  1. REMICADE [Suspect]
     Active Substance: INFLIXIMAB
     Indication: POLYCHONDRITIS
     Route: 042
     Dates: start: 200506, end: 201501
  2. REMICADE [Suspect]
     Active Substance: INFLIXIMAB
     Indication: RHEUMATIC DISORDER
     Route: 042
     Dates: start: 200506, end: 201501

REACTIONS (4)
  - Basal cell carcinoma [Unknown]
  - Thyroid cancer [Unknown]
  - Prostate cancer [Unknown]
  - Product use issue [Unknown]

NARRATIVE: CASE EVENT DATE: 200506
